FAERS Safety Report 8673356 (Version 3)
Quarter: 2012Q4

REPORT INFORMATION
  Report Type: 
  Country: US (occurrence: US)
  Receive Date: 20120719
  Receipt Date: 20120911
  Transmission Date: 20130627
  Serious: Yes (Other)
  Sender: FDA-Public Use
  Company Number: PHEH2012US013896

PATIENT
  Sex: Female

DRUGS (12)
  1. VIVELLE DOT [Suspect]
     Indication: HORMONE THERAPY
     Dosage: 0.025 UKN, UNK
     Route: 062
  2. VIVELLE DOT [Suspect]
     Dosage: 0.05 UKN, QW2
     Route: 062
  3. PRENATAL VITAMINS [Concomitant]
  4. DHEA [Concomitant]
     Dosage: 25 mg, UNK
  5. BENICAR [Concomitant]
  6. ATENOLOL [Concomitant]
     Dosage: 50 mg, BID
  7. B COMPLEX [Concomitant]
  8. HERBAL PREPARATION [Concomitant]
  9. NAPROXEN [Concomitant]
  10. ANTIACID [Concomitant]
  11. VITAMIN B NOS [Concomitant]
  12. CALCIUM [Concomitant]

REACTIONS (3)
  - Systemic lupus erythematosus [Unknown]
  - Hypertension [Unknown]
  - Product quality issue [None]
